FAERS Safety Report 7289904-2 (Version None)
Quarter: 2011Q1

REPORT INFORMATION
  Report Type: 
  Country: None (occurrence: None)
  Receive Date: 20110214
  Receipt Date: 20110201
  Transmission Date: 20110831
  Serious: Yes (Other)
  Sender: FDA-Public Use
  Company Number: CA-ELI_LILLY_AND_COMPANY-CA201102000964

PATIENT
  Age: 51 Year
  Sex: Female

DRUGS (5)
  1. FORTEO [Suspect]
     Indication: OSTEOPOROSIS
     Dosage: 20 UG, DAILY (1/D)
     Route: 058
     Dates: start: 20090730
  2. ATIVAN [Concomitant]
  3. VITAMIN B-12 [Concomitant]
     Dosage: UNK, MONTHLY (1/M)
  4. DILANTIN [Concomitant]
  5. MORPHINE [Concomitant]
     Dosage: 5 MG, UNK

REACTIONS (3)
  - FALL [None]
  - HIP FRACTURE [None]
  - MUSCULAR WEAKNESS [None]
